FAERS Safety Report 16105333 (Version 1)
Quarter: 2019Q1

REPORT INFORMATION
  Report Type: Spontaneous
  Country: DK (occurrence: DK)
  Receive Date: 20190322
  Receipt Date: 20190322
  Transmission Date: 20190418
  Serious: Yes (Other)
  Sender: FDA-Public Use
  Company Number: DK-SA-2019SA072668

PATIENT
  Age: 52 Year
  Sex: Female

DRUGS (5)
  1. TAXOTERE [Suspect]
     Active Substance: DOCETAXEL
     Indication: BREAST CANCER
     Dosage: 150 MG, UNK
     Route: 065
     Dates: start: 2010, end: 2010
  2. CYCLOPHOSPHAMIDE. [Suspect]
     Active Substance: CYCLOPHOSPHAMIDE
     Indication: BREAST CANCER
     Dosage: 1200 MG, UNK
     Route: 065
     Dates: start: 20100930, end: 2010
  3. EPIRUBICIN [Suspect]
     Active Substance: EPIRUBICIN
     Indication: BREAST CANCER
     Dosage: 180 MG, UNK
     Route: 065
     Dates: start: 20100930, end: 2010
  4. TRASTUZUMAB. [Suspect]
     Active Substance: TRASTUZUMAB
     Indication: BREAST CANCER
     Dosage: DOSE: 850MG, 650MG, 650MG. STYRKE: UKENDT.
     Route: 065
     Dates: start: 20101115, end: 20101229
  5. TAMOXIFEN CITRATE. [Suspect]
     Active Substance: TAMOXIFEN CITRATE
     Indication: BREAST CANCER
     Dosage: STYRKE: UKENDT.
     Dates: start: 2011

REACTIONS (6)
  - Paraesthesia [Unknown]
  - Fatigue [Unknown]
  - Polyneuropathy [Unknown]
  - Pain in extremity [Unknown]
  - Arthralgia [Unknown]
  - Pain [Unknown]

NARRATIVE: CASE EVENT DATE: 2014
